FAERS Safety Report 8239583-2 (Version None)
Quarter: 2012Q1

REPORT INFORMATION
  Report Type: 
  Country: None (occurrence: None)
  Receive Date: 20120326
  Receipt Date: 20120315
  Transmission Date: 20120608
  Serious: Yes (Hospitalization, Other)
  Sender: FDA-Public Use
  Company Number: 1231408

PATIENT
  Age: 64 Year
  Sex: Male

DRUGS (4)
  1. METHOTREXATE [Suspect]
     Indication: PRODUCT USED FOR UNKNOWN INDICATION
     Dosage: 15 MILLIGRAM(S), 1 WEEK
  2. FOLIC ACID [Concomitant]
  3. (VITAMIN B12 /00056201/) [Concomitant]
  4. REMICADE [Suspect]
     Indication: CROHN'S DISEASE
     Dosage: 5 MG.KG MILLIGRAM(S)/KILOGRAM (8 WEEK), INTRAVENOUS (NOT OTHERWISE SPECIFIED)
     Route: 042

REACTIONS (6)
  - HYPERCALCAEMIA [None]
  - HYPERPARATHYROIDISM PRIMARY [None]
  - LOWER RESPIRATORY TRACT INFECTION [None]
  - VIRAL INFECTION [None]
  - RENAL FAILURE ACUTE [None]
  - HYPERGAMMAGLOBULINAEMIA BENIGN MONOCLONAL [None]
